FAERS Safety Report 10249990 (Version 2)
Quarter: 2014Q3

REPORT INFORMATION
  Report Type: Report from Study
  Country: US (occurrence: None)
  Receive Date: 20140618
  Receipt Date: 20140829
  Transmission Date: 20150326
  Serious: Yes (Death, Other)
  Sender: FDA-Public Use
  Company Number: 153258

PATIENT
  Age: 65 Year

DRUGS (1)
  1. ADRIAMYCIN [Suspect]
     Active Substance: DOXORUBICIN HYDROCHLORIDE
     Indication: PLASMA CELL MYELOMA
     Dosage: DAY 1 TO 4
     Route: 042
     Dates: start: 20121228, end: 20121231

REACTIONS (2)
  - Renal failure acute [None]
  - Plasma cell leukaemia [None]

NARRATIVE: CASE EVENT DATE: 20121228
